FAERS Safety Report 16444164 (Version 1)
Quarter: 2019Q2

REPORT INFORMATION
  Report Type: Spontaneous
  Country: US (occurrence: US)
  Receive Date: 20190618
  Receipt Date: 20190618
  Transmission Date: 20190711
  Serious: No
  Sender: FDA-Public Use
  Company Number: US-TEVA-2019-US-1059096

PATIENT
  Age: 30 Year
  Sex: Male
  Weight: 51.7 kg

DRUGS (15)
  1. OLANZAPINE. [Concomitant]
     Active Substance: OLANZAPINE
  2. TRAZODONE [Concomitant]
     Active Substance: TRAZODONE HYDROCHLORIDE
  3. CLOZAPINE MYLAN [Suspect]
     Active Substance: CLOZAPINE
     Dosage: 75MG
     Route: 065
     Dates: start: 20190523, end: 20190525
  4. CYMBALTA [Concomitant]
     Active Substance: DULOXETINE HYDROCHLORIDE
  5. LAMOTRIGINE. [Concomitant]
     Active Substance: LAMOTRIGINE
  6. CLOZAPINE MYLAN [Suspect]
     Active Substance: CLOZAPINE
     Dosage: 100MG
     Route: 065
     Dates: start: 20190526, end: 20190527
  7. GABAPENTIN. [Concomitant]
     Active Substance: GABAPENTIN
  8. CLOZAPINE TEVA [Suspect]
     Active Substance: CLOZAPINE
     Indication: SCHIZOAFFECTIVE DISORDER DEPRESSIVE TYPE
     Dosage: 25 MG
     Route: 065
     Dates: start: 20190520
  9. CLOZAPINE MYLAN [Suspect]
     Active Substance: CLOZAPINE
     Dosage: 50MG
     Route: 065
     Dates: start: 20190521, end: 20190521
  10. BUSPIRONE [Concomitant]
     Active Substance: BUSPIRONE HYDROCHLORIDE
  11. INSULIN (UNSPECIFIED) [Concomitant]
  12. CLOZAPINE TEVA [Suspect]
     Active Substance: CLOZAPINE
     Dosage: 100MG
     Route: 065
     Dates: start: 20190526, end: 20190527
  13. CLOZAPINE MYLAN [Suspect]
     Active Substance: CLOZAPINE
     Indication: SCHIZOAFFECTIVE DISORDER DEPRESSIVE TYPE
     Dosage: 25 MG
     Route: 065
     Dates: start: 20190520
  14. CLOZAPINE TEVA [Suspect]
     Active Substance: CLOZAPINE
     Dosage: 50MG
     Route: 065
     Dates: start: 20190521, end: 20190523
  15. CLOZAPINE TEVA [Suspect]
     Active Substance: CLOZAPINE
     Dosage: 75MG
     Route: 065
     Dates: start: 20190524, end: 20190525

REACTIONS (7)
  - Panic attack [Unknown]
  - Tachycardia [Unknown]
  - Drooling [Unknown]
  - Tremor [Unknown]
  - Nausea [Unknown]
  - Myalgia [Unknown]
  - Abnormal behaviour [Unknown]

NARRATIVE: CASE EVENT DATE: 20190526
